FAERS Safety Report 8091872-0 (Version None)
Quarter: 2012Q1

REPORT INFORMATION
  Report Type: 
  Country: None (occurrence: None)
  Receive Date: 20120129
  Receipt Date: 20111206
  Transmission Date: 20120608
  Serious: No
  Sender: FDA-Public Use
  Company Number: US-ABBOTT-11P-163-0881144-00

PATIENT
  Age: 77 Year
  Sex: Female

DRUGS (5)
  1. IRON [Concomitant]
     Indication: ANAEMIA
     Dosage: INFUSIONS
  2. LEVOTHYROXINE SODIUM [Concomitant]
     Indication: PRODUCT USED FOR UNKNOWN INDICATION
  3. OMEPRAZOLE [Concomitant]
     Indication: GASTRIC HAEMORRHAGE
  4. AMLODIPINE [Concomitant]
     Indication: HYPERTENSION
  5. HUMIRA [Suspect]
     Indication: CROHN'S DISEASE
     Dates: start: 20111104

REACTIONS (2)
  - ARTHRALGIA [None]
  - JOINT SWELLING [None]
